FAERS Safety Report 10700352 (Version 2)
Quarter: 2015Q1

REPORT INFORMATION
  Report Type: Spontaneous
  Country: US (occurrence: US)
  Receive Date: 20150109
  Receipt Date: 20150120
  Transmission Date: 20150721
  Serious: Yes (Other)
  Sender: FDA-Public Use
  Company Number: US-RB-071887-15

PATIENT
  Age: 98 Year
  Sex: Female

DRUGS (4)
  1. MUCINEX FAST-MAX DM MAX [Suspect]
     Active Substance: DEXTROMETHORPHAN HYDROBROMIDE\GUAIFENESIN
     Indication: NASOPHARYNGITIS
     Dosage: TOOK TOTAL 2 DOSES, FILLED WHITE CAP WITH EACH DOSE; LAST USED THE PRODUCT ON 30-DEC-2014 AT 10PM
     Route: 065
     Dates: start: 20141230
  2. HYDRALAXINE [Concomitant]
     Indication: CARDIAC FAILURE CONGESTIVE
     Route: 065
  3. CARBITILOL [Concomitant]
     Indication: CARDIAC FAILURE CONGESTIVE
     Route: 065
  4. LASIX [Concomitant]
     Active Substance: FUROSEMIDE
     Indication: PRODUCT USED FOR UNKNOWN INDICATION
     Dosage: DAILY
     Route: 065

REACTIONS (2)
  - Overdose [Recovered/Resolved]
  - Depression [Recovered/Resolved]

NARRATIVE: CASE EVENT DATE: 20141230
